FAERS Safety Report 21027763 (Version 2)
Quarter: 2022Q3

REPORT INFORMATION
  Report Type: Spontaneous
  Country: US (occurrence: US)
  Receive Date: 20220630
  Receipt Date: 20220715
  Transmission Date: 20221026
  Serious: Yes (Other)
  Sender: FDA-Public Use
  Company Number: US-TEVA-2022-US-2049821

PATIENT
  Age: 59 Year
  Sex: Female

DRUGS (4)
  1. LEFLUNOMIDE [Suspect]
     Active Substance: LEFLUNOMIDE
     Indication: Rheumatoid arthritis
     Dosage: 20 MILLIGRAM DAILY;
     Route: 065
     Dates: start: 201409, end: 2015
  2. PREDNISONE [Concomitant]
     Active Substance: PREDNISONE
     Indication: Rheumatoid arthritis
     Dosage: 5 MILLIGRAM DAILY;
     Route: 065
  3. NAPROXEN [Concomitant]
     Active Substance: NAPROXEN
     Indication: Arthralgia
     Dosage: DAILY AS NECESSARY
     Route: 065
  4. IBUPROFEN [Concomitant]
     Active Substance: IBUPROFEN
     Indication: Arthralgia
     Dosage: DAILY AS NECESSARY
     Route: 065

REACTIONS (4)
  - Autoimmune hepatitis [Recovering/Resolving]
  - Hepatic necrosis [Recovering/Resolving]
  - Portal fibrosis [Recovering/Resolving]
  - Hepatic fibrosis [Recovering/Resolving]

NARRATIVE: CASE EVENT DATE: 20150101
